FAERS Safety Report 24293080 (Version 1)
Quarter: 2024Q3

REPORT INFORMATION
  Report Type: Spontaneous
  Country: US (occurrence: None)
  Receive Date: 20240906
  Receipt Date: 20240906
  Transmission Date: 20241017
  Serious: No
  Sender: DOMPE FARMACEUTICI
  Company Number: US-FARMAPROD-202311-3471

PATIENT
  Sex: Female

DRUGS (3)
  1. OXERVATE [Suspect]
     Active Substance: CENEGERMIN-BKBJ
     Indication: Neurotrophic keratopathy
     Route: 047
     Dates: start: 20231031
  2. OXERVATE [Suspect]
     Active Substance: CENEGERMIN-BKBJ
  3. KEYTRUDA [Concomitant]
     Active Substance: PEMBROLIZUMAB
     Dosage: 100MG /4 ML, VIAL

REACTIONS (5)
  - Product dose omission issue [Unknown]
  - Ocular discomfort [Unknown]
  - Eye swelling [Unknown]
  - Photophobia [Not Recovered/Not Resolved]
  - Asthenopia [Unknown]
